FAERS Safety Report 26060052 (Version 1)
Quarter: 2025Q4

REPORT INFORMATION
  Report Type: Spontaneous
  Country: EU (occurrence: EU)
  Receive Date: 20251118
  Receipt Date: 20251118
  Transmission Date: 20260117
  Serious: Yes (Life-Threatening)
  Sender: MYLAN
  Company Number: None

PATIENT
  Age: 65 Year
  Sex: Male
  Weight: 74 kg

DRUGS (4)
  1. VALPROATE SODIUM [Suspect]
     Active Substance: VALPROATE SODIUM
     Indication: Bipolar disorder
     Dosage: 1250 MILLIGRAM, QD (500 MG MORNING AND EVENING, 250MG AT NOON)
     Dates: end: 20251011
  2. VALPROATE SODIUM [Suspect]
     Active Substance: VALPROATE SODIUM
     Dosage: 1250 MILLIGRAM, QD (500 MG MORNING AND EVENING, 250MG AT NOON)
     Route: 048
     Dates: end: 20251011
  3. VALPROATE SODIUM [Suspect]
     Active Substance: VALPROATE SODIUM
     Dosage: 1250 MILLIGRAM, QD (500 MG MORNING AND EVENING, 250MG AT NOON)
     Route: 048
     Dates: end: 20251011
  4. VALPROATE SODIUM [Suspect]
     Active Substance: VALPROATE SODIUM
     Dosage: 1250 MILLIGRAM, QD (500 MG MORNING AND EVENING, 250MG AT NOON)
     Dates: end: 20251011

REACTIONS (2)
  - Acute kidney injury [Recovering/Resolving]
  - Pancreatitis [Recovering/Resolving]

NARRATIVE: CASE EVENT DATE: 20251010
